FAERS Safety Report 24366576 (Version 1)
Quarter: 2024Q3

REPORT INFORMATION
  Report Type: Spontaneous
  Country: US (occurrence: None)
  Receive Date: 20240926
  Receipt Date: 20240926
  Transmission Date: 20241017
  Serious: Yes (Hospitalization)
  Sender: Public
  Company Number: None

PATIENT
  Sex: Female

DRUGS (10)
  1. CAPECITABINE [Suspect]
     Active Substance: CAPECITABINE
     Indication: Breast cancer female
     Dosage: OTHER QUANTITY : TAKE 4 TABLETS;?FREQUENCY : TWICE A DAY;?
     Route: 048
     Dates: start: 20240823
  2. BACLOFEN [Concomitant]
     Active Substance: BACLOFEN
  3. HERCEPTIN [Concomitant]
     Active Substance: TRASTUZUMAB
  4. IMODIUM A-D [Concomitant]
     Active Substance: LOPERAMIDE HYDROCHLORIDE
  5. KEPPRA [Concomitant]
     Active Substance: LEVETIRACETAM
  6. LEXAPRO [Concomitant]
     Active Substance: ESCITALOPRAM OXALATE
  7. LIDO/PRILOCN CRE [Concomitant]
  8. ONDANSETRON [Concomitant]
     Active Substance: ONDANSETRON
  9. POTASSIUM POW CHLORIDE [Concomitant]
  10. PROCHLORPER [Concomitant]

REACTIONS (3)
  - Diarrhoea [None]
  - Gastrointestinal disorder [None]
  - Adverse drug reaction [None]
